FAERS Safety Report 19460086 (Version 1)
Quarter: 2021Q2

REPORT INFORMATION
  Report Type: Report from Study
  Country: CA (occurrence: CA)
  Receive Date: 20210625
  Receipt Date: 20210625
  Transmission Date: 20210717
  Serious: Yes (Hospitalization, Other)
  Sender: FDA-Public Use
  Company Number: CA-JNJFOC-20210401091

PATIENT
  Age: 93 Year
  Sex: Female

DRUGS (2)
  1. REMICADE [Suspect]
     Active Substance: INFLIXIMAB
     Indication: ANKYLOSING SPONDYLITIS
     Dosage: ON 17?JUN?2021, THE PATIENT RECEIVED 90TH INFLIXIMAB INFUSION FOR DOSE OF 200 MG ONCE IN 8 WEEK.
     Route: 042
     Dates: start: 20080121
  2. REMICADE [Suspect]
     Active Substance: INFLIXIMAB
     Route: 042
     Dates: start: 20160530

REACTIONS (4)
  - Hospitalisation [Unknown]
  - Staphylococcal infection [Unknown]
  - Off label use [Unknown]
  - Product use issue [Unknown]

NARRATIVE: CASE EVENT DATE: 2021
